FAERS Safety Report 19237200 (Version 2)
Quarter: 2021Q2

REPORT INFORMATION
  Report Type: Spontaneous
  Country: US (occurrence: US)
  Receive Date: 20210510
  Receipt Date: 20210625
  Transmission Date: 20210717
  Serious: Yes (Other)
  Sender: FDA-Public Use
  Company Number: US-GLAXOSMITHKLINE-US2021GSK099202

PATIENT
  Sex: Female

DRUGS (8)
  1. RANITIDINE. [Suspect]
     Active Substance: RANITIDINE
     Indication: IRRITABLE BOWEL SYNDROME
     Dosage: UNK UNK, QD
     Route: 065
     Dates: start: 2014, end: 2019
  2. RANITIDINE. [Suspect]
     Active Substance: RANITIDINE
     Indication: ULCER
  3. RANITIDINE. [Suspect]
     Active Substance: RANITIDINE
     Indication: ULCER
  4. RANITIDINE. [Suspect]
     Active Substance: RANITIDINE
     Indication: ULCER
  5. RANITIDINE. [Suspect]
     Active Substance: RANITIDINE
     Indication: IRRITABLE BOWEL SYNDROME
     Dosage: UNK UNK, QD
     Route: 065
     Dates: start: 2014, end: 2019
  6. RANITIDINE CAPSULE [Suspect]
     Active Substance: RANITIDINE
     Indication: IRRITABLE BOWEL SYNDROME
     Dosage: UNK UNK, QD
     Route: 065
     Dates: start: 2014, end: 2019
  7. RANITIDINE. [Suspect]
     Active Substance: RANITIDINE
     Indication: IRRITABLE BOWEL SYNDROME
     Dosage: UNK UNK, QD
     Route: 065
     Dates: start: 2014, end: 2019
  8. RANITIDINE CAPSULE [Suspect]
     Active Substance: RANITIDINE
     Indication: ULCER

REACTIONS (1)
  - Pancreatic carcinoma [Unknown]
